FAERS Safety Report 9738746 (Version 3)
Quarter: 2014Q3

REPORT INFORMATION
  Report Type: Report from Study
  Country: JP (occurrence: JP)
  Receive Date: 20131209
  Receipt Date: 20140902
  Transmission Date: 20150326
  Serious: Yes (Hospitalization, Other)
  Sender: FDA-Public Use
  Company Number: JP-AMGEN-JPNCT2013086103

PATIENT
  Age: 74 Year
  Sex: Female
  Weight: 62 kg

DRUGS (26)
  1. MAINTATE [Concomitant]
     Active Substance: BISOPROLOL FUMARATE
     Dosage: UNK
     Route: 048
  2. PARIET [Concomitant]
     Active Substance: RABEPRAZOLE SODIUM
     Dosage: UNK
     Route: 048
  3. FUROSEMIDE. [Concomitant]
     Active Substance: FUROSEMIDE
     Indication: DIABETIC NEPHROPATHY
     Dosage: UNK
     Route: 065
  4. URINORM [Concomitant]
     Active Substance: BENZBROMARONE
     Indication: DIABETIC NEPHROPATHY
     Dosage: UNK
     Route: 048
  5. ITOROL [Concomitant]
     Active Substance: ISOSORBIDE MONONITRATE
     Dosage: UNK
     Route: 048
  6. PLAVIX [Concomitant]
     Active Substance: CLOPIDOGREL BISULFATE
     Dosage: UNK
     Route: 048
  7. NOVOLIN 50R [Concomitant]
     Dosage: UNK
     Route: 065
  8. HANP [Concomitant]
     Active Substance: CARPERITIDE
     Dosage: UNK
     Route: 065
  9. BAYASPIRIN [Concomitant]
     Active Substance: ASPIRIN
     Dosage: UNK
     Route: 048
  10. LIPITOR [Concomitant]
     Active Substance: ATORVASTATIN CALCIUM
     Dosage: UNK
     Route: 048
  11. SOLDEM 1 [Concomitant]
     Dosage: UNK
     Route: 065
  12. NIKORANMART [Concomitant]
     Active Substance: NICORANDIL
     Dosage: UNK
     Route: 048
  13. GLUCOSE [Concomitant]
     Active Substance: DEXTROSE
     Dosage: UNK
     Route: 065
  14. DARBEPOETIN ALFA - KHK [Suspect]
     Active Substance: DARBEPOETIN ALFA
     Indication: NEPHROGENIC ANAEMIA
     Dosage: 180 MUG, QD
     Route: 058
     Dates: start: 20111011
  15. ADALAT [Concomitant]
     Active Substance: NIFEDIPINE
     Dosage: UNK
     Route: 048
  16. MICARDIS [Concomitant]
     Active Substance: TELMISARTAN
     Indication: DIABETIC NEPHROPATHY
     Dosage: UNK
     Route: 048
  17. FLUITRAN [Concomitant]
     Active Substance: TRICHLORMETHIAZIDE
     Indication: DIABETIC NEPHROPATHY
     Dosage: UNK
     Route: 048
  18. ISOTONIC SODIUM CHLORIDE SOLUTION [Concomitant]
     Active Substance: SODIUM CHLORIDE
     Dosage: UNK
     Route: 065
  19. HUMULIN R [Concomitant]
     Active Substance: INSULIN HUMAN
     Dosage: UNK
     Route: 065
  20. JUSO [Concomitant]
     Indication: DIABETIC NEPHROPATHY
     Dosage: UNK
     Route: 048
  21. FEBURIC [Concomitant]
     Active Substance: FEBUXOSTAT
     Indication: DIABETIC NEPHROPATHY
     Dosage: UNK
     Route: 048
  22. HUMALOG MIX [Concomitant]
     Active Substance: INSULIN LISPRO
     Dosage: UNK
     Route: 065
  23. D ALFA [Concomitant]
     Active Substance: ALFACALCIDOL
     Indication: DIABETIC NEPHROPATHY
     Dosage: UNK
     Route: 048
  24. HEPARIN SODIUM. [Concomitant]
     Active Substance: HEPARIN SODIUM
     Dosage: UNK
     Route: 065
  25. TRAZENTA [Concomitant]
     Active Substance: LINAGLIPTIN
     Dosage: UNK
     Route: 048
  26. OMEPRAZOLE. [Concomitant]
     Active Substance: OMEPRAZOLE
     Dosage: UNK
     Route: 065

REACTIONS (4)
  - Cardiac failure [Recovering/Resolving]
  - Hypokalaemia [Recovering/Resolving]
  - Blood calcium decreased [Not Recovered/Not Resolved]
  - Cataract [Recovering/Resolving]

NARRATIVE: CASE EVENT DATE: 20121001
